FAERS Safety Report 10248999 (Version 2)
Quarter: 2015Q2

REPORT INFORMATION
  Report Type: Spontaneous
  Country: FR (occurrence: FR)
  Receive Date: 20140620
  Receipt Date: 20150430
  Transmission Date: 20150821
  Serious: Yes (Other)
  Sender: FDA-Public Use
  Company Number: FR-009507513-1406FRA009445

PATIENT
  Age: 75 Year
  Sex: Female
  Weight: 65 kg

DRUGS (4)
  1. DAONIL [Concomitant]
     Active Substance: GLYBURIDE
     Dosage: 15 MG, QD
     Dates: start: 2007
  2. JANUVIA [Suspect]
     Active Substance: SITAGLIPTIN PHOSPHATE
     Indication: TYPE 2 DIABETES MELLITUS
     Dosage: 50 MG, QD
     Route: 065
     Dates: start: 20110221, end: 20140613
  3. METFORMIN [Concomitant]
     Active Substance: METFORMIN HYDROCHLORIDE
     Dosage: 2550 MG, QD
     Dates: start: 2005
  4. DIAMICRON [Concomitant]
     Active Substance: GLICLAZIDE
     Dosage: 60 MG, QD
     Dates: start: 2002, end: 2007

REACTIONS (5)
  - Pancreatic cyst [Unknown]
  - Adrenal adenoma [Unknown]
  - Pruritus [Unknown]
  - Pancreatic calcification [Unknown]
  - Pemphigoid [Unknown]

NARRATIVE: CASE EVENT DATE: 20140528
